FAERS Safety Report 10927939 (Version 1)
Quarter: 2015Q1

REPORT INFORMATION
  Report Type: Spontaneous
  Country: None (occurrence: None)
  Receive Date: 20150317
  Receipt Date: 20150317
  Transmission Date: 20150721
  Serious: No
  Sender: FDA-Public Use
  Company Number: None

PATIENT
  Age: 37 Year
  Sex: Male
  Weight: 85.28 kg

DRUGS (1)
  1. ATORVASTATIN 40MG WATSON [Suspect]
     Active Substance: ATORVASTATIN
     Indication: BLOOD CHOLESTEROL
     Dosage: 1/2 PILL
     Route: 048

REACTIONS (4)
  - Confusional state [None]
  - Poor peripheral circulation [None]
  - Dizziness [None]
  - Sleep disorder [None]

NARRATIVE: CASE EVENT DATE: 20150316
